FAERS Safety Report 25378780 (Version 1)
Quarter: 2025Q2

REPORT INFORMATION
  Report Type: Spontaneous
  Country: US (occurrence: None)
  Receive Date: 20250530
  Receipt Date: 20250530
  Transmission Date: 20250716
  Serious: Yes (Hospitalization)
  Sender: FDA-CTU
  Company Number: None

PATIENT
  Age: 83 Year
  Sex: Male
  Weight: 42.7 kg

DRUGS (1)
  1. PEMBROLIZUMAB [Suspect]
     Active Substance: PEMBROLIZUMAB

REACTIONS (12)
  - Dyspnoea [None]
  - Hypotension [None]
  - Sepsis [None]
  - Tachypnoea [None]
  - Pneumonia aspiration [None]
  - Urinary tract infection [None]
  - Acute kidney injury [None]
  - Respiratory failure [None]
  - Facial paralysis [None]
  - Headache [None]
  - Neoplasm malignant [None]
  - Dysarthria [None]

NARRATIVE: CASE EVENT DATE: 20250313
